FAERS Safety Report 7092486-1 (Version None)
Quarter: 2010Q4

REPORT INFORMATION
  Report Type: 
  Country: None (occurrence: None)
  Receive Date: 20101108
  Receipt Date: 20101108
  Transmission Date: 20110411
  Serious: No
  Sender: FDA-Public Use
  Company Number: None

PATIENT
  Sex: Female

DRUGS (2)
  1. AMPYRA [Suspect]
     Dosage: 10 MG SC TAKE 1 TABLET BY MOUTH EVERY 12 HOURS
     Route: 058
  2. BETASERON [Suspect]

REACTIONS (2)
  - FEAR [None]
  - TREMOR [None]
